FAERS Safety Report 8210141-9 (Version None)
Quarter: 2012Q1

REPORT INFORMATION
  Report Type: 
  Country: None (occurrence: None)
  Receive Date: 20120314
  Receipt Date: 20111005
  Transmission Date: 20120608
  Serious: No
  Sender: FDA-Public Use
  Company Number: US-ASTRAZENECA-2011SE59787

PATIENT
  Weight: 79.4 kg

DRUGS (1)
  1. TOPROL-XL [Suspect]
     Route: 048

REACTIONS (19)
  - DRY EYE [None]
  - ALOPECIA [None]
  - EYE PAIN [None]
  - SOMNOLENCE [None]
  - BLOOD GLUCOSE DECREASED [None]
  - VAGINAL INFLAMMATION [None]
  - PHOTOPHOBIA [None]
  - EYE IRRITATION [None]
  - NAUSEA [None]
  - WEIGHT DECREASED [None]
  - ASTHENIA [None]
  - UPPER-AIRWAY COUGH SYNDROME [None]
  - BLOOD URINE PRESENT [None]
  - UNDERDOSE [None]
  - DYSPHAGIA [None]
  - STOMATITIS [None]
  - PRURITUS [None]
  - BLADDER SPASM [None]
  - DYSGEUSIA [None]
